FAERS Safety Report 8459004-4 (Version None)
Quarter: 2012Q2

REPORT INFORMATION
  Report Type: 
  Country: None (occurrence: None)
  Receive Date: 20120622
  Receipt Date: 20120612
  Transmission Date: 20120825
  Serious: Yes (Hospitalization)
  Sender: FDA-Public Use
  Company Number: FR-ROCHE-1077959

PATIENT
  Age: 34 Year
  Sex: Female

DRUGS (7)
  1. LYRICA [Suspect]
     Indication: PHANTOM PAIN
     Route: 048
     Dates: start: 20111017, end: 20120320
  2. PREDNISONE TAB [Concomitant]
  3. FOLIC ACID [Concomitant]
  4. CLONAZEPAM [Suspect]
     Indication: PHANTOM PAIN
     Route: 048
     Dates: start: 20111206
  5. TACROLIMUS [Concomitant]
  6. CELLCEPT [Concomitant]
  7. ASPIRIN [Concomitant]
     Route: 048

REACTIONS (3)
  - MEMORY IMPAIRMENT [None]
  - DISTURBANCE IN ATTENTION [None]
  - SOMNOLENCE [None]
